FAERS Safety Report 18361583 (Version 2)
Quarter: 2020Q4

REPORT INFORMATION
  Report Type: Spontaneous
  Country: IT (occurrence: IT)
  Receive Date: 20201008
  Receipt Date: 20201012
  Transmission Date: 20210114
  Serious: Yes (Hospitalization)
  Sender: FDA-Public Use
  Company Number: IT-BAXTER-2020BAX020175

PATIENT
  Age: 58 Year
  Sex: Female

DRUGS (14)
  1. CYTARABINE. [Concomitant]
     Active Substance: CYTARABINE
     Dosage: FEAM REGIMEN
     Route: 065
     Dates: start: 201810
  2. FOTEMUSTINE [Concomitant]
     Active Substance: FOTEMUSTINE
     Indication: MANTLE CELL LYMPHOMA RECURRENT
     Dosage: FEAM REGIMEN
     Route: 065
     Dates: start: 201810
  3. RITUXIMAB. [Concomitant]
     Active Substance: RITUXIMAB
     Indication: MANTLE CELL LYMPHOMA RECURRENT
     Dosage: 6 CYCLES OF R-CHOP REGIMEN
     Route: 065
  4. RITUXIMAB. [Concomitant]
     Active Substance: RITUXIMAB
     Dosage: 6 CYCLES OF R-DHAP REGIMEN
     Route: 065
  5. PREDNISONE. [Concomitant]
     Active Substance: PREDNISONE
     Indication: MANTLE CELL LYMPHOMA RECURRENT
     Dosage: 6 CYCLES OF R-CHOP REGIMEN
     Route: 065
  6. CYTARABINE. [Concomitant]
     Active Substance: CYTARABINE
     Indication: MANTLE CELL LYMPHOMA RECURRENT
     Dosage: 6 CYCLES OF R-DHAP REGIMEN
     Route: 065
  7. DEXAMETHASONE. [Concomitant]
     Active Substance: DEXAMETHASONE
     Indication: MANTLE CELL LYMPHOMA RECURRENT
     Dosage: 6 CYCLES OF R-DHAP REGIMEN
     Route: 065
  8. CYCLOPHOSPHAMIDE. [Concomitant]
     Active Substance: CYCLOPHOSPHAMIDE
     Indication: MANTLE CELL LYMPHOMA RECURRENT
     Dosage: 6 CYCLES OF R-CHOP REGIMEN
     Route: 065
  9. METHOTREXATE. [Concomitant]
     Active Substance: METHOTREXATE
     Indication: MANTLE CELL LYMPHOMA RECURRENT
     Route: 065
  10. CISPLATIN. [Concomitant]
     Active Substance: CISPLATIN
     Indication: MANTLE CELL LYMPHOMA RECURRENT
     Dosage: 6 CYCLES OF R-DHAP REGIMEN
     Route: 065
  11. VINCRISTINE [Concomitant]
     Active Substance: VINCRISTINE
     Indication: MANTLE CELL LYMPHOMA RECURRENT
     Dosage: 6 CYCLES OF R-CHOP REGIMEN
     Route: 065
  12. DOXIL [Suspect]
     Active Substance: DOXORUBICIN HYDROCHLORIDE
     Indication: MANTLE CELL LYMPHOMA RECURRENT
     Route: 065
  13. ETOPOSIDE. [Concomitant]
     Active Substance: ETOPOSIDE
     Indication: MANTLE CELL LYMPHOMA RECURRENT
     Dosage: FEAM REGIMEN
     Route: 065
     Dates: start: 201810
  14. MELPHALAN. [Concomitant]
     Active Substance: MELPHALAN
     Indication: MANTLE CELL LYMPHOMA RECURRENT
     Dosage: FEAM REGIMEN
     Route: 065
     Dates: start: 201810

REACTIONS (2)
  - Septic shock [Recovered/Resolved]
  - Atrial fibrillation [Recovered/Resolved]
